FAERS Safety Report 22602916 (Version 1)
Quarter: 2023Q2

REPORT INFORMATION
  Report Type: Spontaneous
  Country: US (occurrence: US)
  Receive Date: 20230615
  Receipt Date: 20230615
  Transmission Date: 20230721
  Serious: No
  Sender: FDA-Public Use
  Company Number: US-PADAGIS-2023PAD00824

PATIENT

DRUGS (1)
  1. PODOFILOX [Suspect]
     Active Substance: PODOFILOX
     Indication: Anogenital warts
     Dosage: UNK
     Route: 065

REACTIONS (3)
  - Gait inability [Unknown]
  - Loss of personal independence in daily activities [Unknown]
  - Pain [Unknown]
